FAERS Safety Report 15298258 (Version 7)
Quarter: 2019Q1

REPORT INFORMATION
  Report Type: Spontaneous
  Country: IN (occurrence: IN)
  Receive Date: 20180820
  Receipt Date: 20190315
  Transmission Date: 20190417
  Serious: Yes (Other)
  Sender: FDA-Public Use
  Company Number: IN-PFIZER INC-2018297980

PATIENT
  Age: 38 Year
  Sex: Male

DRUGS (3)
  1. CHAMPIX [Suspect]
     Active Substance: VARENICLINE TARTRATE
     Indication: SMOKING CESSATION THERAPY
     Dosage: 2 MG, PER DAY
     Route: 048
     Dates: start: 20180701, end: 20180724
  2. CHAMPIX [Suspect]
     Active Substance: VARENICLINE TARTRATE
     Dosage: 2 MG, PER DAY
     Route: 048
     Dates: start: 201810, end: 201812
  3. CHAMPIX [Suspect]
     Active Substance: VARENICLINE TARTRATE
     Dosage: 2 MG, PER DAY
     Route: 048
     Dates: start: 20180827, end: 201810

REACTIONS (5)
  - Extremity necrosis [Not Recovered/Not Resolved]
  - Pain in extremity [Unknown]
  - Purulence [Not Recovered/Not Resolved]
  - Inflammation of wound [Recovering/Resolving]
  - Suicidal ideation [Not Recovered/Not Resolved]
